FAERS Safety Report 8482818 (Version 8)
Quarter: 2014Q1

REPORT INFORMATION
  Report Type: Spontaneous
  Country: US (occurrence: US)
  Receive Date: 20120329
  Receipt Date: 20140130
  Transmission Date: 20141002
  Serious: Yes (Hospitalization, Disabling, Other)
  Sender: FDA-Public Use
  Company Number: US-009507513-1203USA03475

PATIENT
  Sex: Female
  Weight: 79.37 kg

DRUGS (7)
  1. FOSAMAX [Suspect]
     Indication: OSTEOPOROSIS PROPHYLAXIS
     Dosage: 70 MG, QW
     Route: 048
     Dates: start: 19971229, end: 20110424
  2. FOSAMAX [Suspect]
     Indication: OSTEOPOROSIS PROPHYLAXIS
     Dosage: 70 MG, QW
     Route: 048
  3. TAMBOCOR [Concomitant]
     Indication: ATRIAL FIBRILLATION
     Dosage: 100 MG, UNK
  4. LANOXIN [Concomitant]
     Indication: ATRIAL FIBRILLATION
  5. ALENDRONATE SODIUM [Suspect]
     Indication: OSTEOPOROSIS PROPHYLAXIS
     Dosage: 70 MG, UNK
     Route: 048
     Dates: start: 20090425, end: 20110124
  6. CALCIUM (UNSPECIFIED) [Concomitant]
     Dosage: 500 MG, QD
  7. CALCIUM (UNSPECIFIED) [Concomitant]
     Dosage: 600 MG, QD

REACTIONS (86)
  - Fracture nonunion [Unknown]
  - Fracture delayed union [Unknown]
  - Cardiac failure congestive [Unknown]
  - Atrial fibrillation [Unknown]
  - Cardiac tamponade [Unknown]
  - Pericardial drainage [Unknown]
  - Atrial fibrillation [Unknown]
  - Post procedural complication [Unknown]
  - Catheterisation cardiac [Unknown]
  - Post procedural complication [Unknown]
  - Hysterectomy [Unknown]
  - Pneumonia [Unknown]
  - Catheterisation cardiac [Unknown]
  - Cardiac pacemaker insertion [Unknown]
  - Basal cell carcinoma [Unknown]
  - Medical device removal [Unknown]
  - Medical device removal [Unknown]
  - Stress fracture [Unknown]
  - Cardiac failure congestive [Unknown]
  - Open reduction of fracture [Unknown]
  - Systemic lupus erythematosus [Unknown]
  - Osteonecrosis [Unknown]
  - Joint arthroplasty [Unknown]
  - Arthrodesis [Unknown]
  - Femur fracture [Not Recovered/Not Resolved]
  - Hand fracture [Unknown]
  - Foot fracture [Unknown]
  - Impaired healing [Unknown]
  - Aspiration breast [Unknown]
  - Endodontic procedure [Unknown]
  - Vitreous detachment [Unknown]
  - Foot fracture [Unknown]
  - Spinal osteoarthritis [Unknown]
  - Pericardial disease [Unknown]
  - Atrial flutter [Unknown]
  - Atrial tachycardia [Unknown]
  - Osteoporosis [Unknown]
  - Gastrointestinal haemorrhage [Unknown]
  - Dyspnoea [Unknown]
  - Foot fracture [Unknown]
  - Foot deformity [Unknown]
  - Morton^s neuralgia [Unknown]
  - Musculoskeletal disorder [Unknown]
  - Stress fracture [Unknown]
  - Foot operation [Unknown]
  - Cardiac murmur [Unknown]
  - Tinnitus [Unknown]
  - Tinnitus [Unknown]
  - Dyspnoea [Unknown]
  - Dyspnoea [Unknown]
  - Tachyarrhythmia [Unknown]
  - Cardiac disorder [Unknown]
  - Hypertension [Unknown]
  - Increased tendency to bruise [Unknown]
  - Chest pain [Unknown]
  - Palpitations [Unknown]
  - Depression [Unknown]
  - Sinus congestion [Unknown]
  - Lung infiltration [Unknown]
  - Atrial tachycardia [Unknown]
  - Chest pain [Unknown]
  - Atrial fibrillation [Not Recovered/Not Resolved]
  - Hypothyroidism [Unknown]
  - Foot fracture [Unknown]
  - Osteoarthritis [Unknown]
  - Fracture displacement [Unknown]
  - Haemorrhagic anaemia [Unknown]
  - Dyslipidaemia [Unknown]
  - Arthritis [Unknown]
  - Intervertebral disc degeneration [Unknown]
  - Cardiac failure congestive [Unknown]
  - Bronchiectasis [Unknown]
  - Asthma [Unknown]
  - Large intestine polyp [Unknown]
  - Generalised anxiety disorder [Unknown]
  - Fall [Unknown]
  - Fracture delayed union [Unknown]
  - Medical device discomfort [Unknown]
  - Musculoskeletal pain [Unknown]
  - Pain in extremity [Unknown]
  - Pain in extremity [Unknown]
  - Arthralgia [Unknown]
  - Back pain [Unknown]
  - Diarrhoea [Unknown]
  - Gastrooesophageal reflux disease [Unknown]
  - Gastrooesophageal reflux disease [Unknown]
